FAERS Safety Report 8350621-9 (Version None)
Quarter: 2012Q2

REPORT INFORMATION
  Report Type: 
  Country: None (occurrence: None)
  Receive Date: 20120509
  Receipt Date: 20120502
  Transmission Date: 20120825
  Serious: Yes (Hospitalization, Other)
  Sender: FDA-Public Use
  Company Number: DE-ASTRAZENECA-2012SE27828

PATIENT
  Age: 63 Year
  Sex: Male

DRUGS (9)
  1. OMEPRAZOLE [Suspect]
     Route: 048
     Dates: end: 20091001
  2. CODEINE PHOSPHATE [Concomitant]
     Indication: DIARRHOEA
  3. ALUMINUM HYDROXIDE GEL [Concomitant]
     Indication: DIARRHOEA
  4. OMEPRAZOLE [Suspect]
     Indication: GASTRITIS EROSIVE
     Route: 048
  5. OMEPRAZOLE [Suspect]
     Route: 048
     Dates: end: 20091001
  6. SIMVASTATIN [Concomitant]
     Indication: CARDIOVASCULAR EVENT PROPHYLAXIS
  7. RANITIDINE [Concomitant]
     Indication: GASTRITIS EROSIVE
     Dosage: UNK
     Route: 048
     Dates: start: 20091001
  8. OMEPRAZOLE [Suspect]
     Indication: GASTROOESOPHAGEAL REFLUX DISEASE
     Route: 048
  9. AMLODIPINE BESYLATE [Concomitant]
     Indication: HYPERTENSION

REACTIONS (11)
  - MYOCLONUS [None]
  - HYPOMAGNESAEMIA [None]
  - HYPOCALCAEMIA [None]
  - VOMITING [None]
  - CONVULSION [None]
  - HYPOKALAEMIA [None]
  - ACUTE PRERENAL FAILURE [None]
  - DIARRHOEA [None]
  - DEHYDRATION [None]
  - LETHARGY [None]
  - BLOOD GLUCOSE INCREASED [None]
